FAERS Safety Report 13639512 (Version 1)
Quarter: 2017Q2

REPORT INFORMATION
  Report Type: Spontaneous
  Country: US (occurrence: US)
  Receive Date: 20170609
  Receipt Date: 20170609
  Transmission Date: 20170830
  Serious: No
  Sender: FDA-Public Use
  Company Number: US-ROCHE-444976

PATIENT
  Age: 58 Year
  Sex: Female
  Weight: 84.1 kg

DRUGS (4)
  1. KLONOPIN [Interacting]
     Active Substance: CLONAZEPAM
     Route: 048
  2. CLARITHROMYCIN. [Interacting]
     Active Substance: CLARITHROMYCIN
     Indication: INFECTION
     Route: 048
  3. ACETAMINOPHEN. [Concomitant]
     Active Substance: ACETAMINOPHEN
     Route: 065
  4. KLONOPIN [Suspect]
     Active Substance: CLONAZEPAM
     Indication: TREMOR
     Route: 048

REACTIONS (8)
  - Drug ineffective [Unknown]
  - Product odour abnormal [Unknown]
  - Product formulation issue [Unknown]
  - Drug interaction [Unknown]
  - Migraine [Unknown]
  - Product quality issue [Unknown]
  - Contusion [Not Recovered/Not Resolved]
  - Fatigue [Unknown]

NARRATIVE: CASE EVENT DATE: 200604
